FAERS Safety Report 10229709 (Version 1)
Quarter: 2014Q2

REPORT INFORMATION
  Report Type: Report from Study
  Country: BR (occurrence: BR)
  Receive Date: 20140611
  Receipt Date: 20140611
  Transmission Date: 20141212
  Serious: Yes (Hospitalization, Other)
  Sender: FDA-Public Use
  Company Number: PHHY2014BR071152

PATIENT
  Sex: Female
  Weight: 70 kg

DRUGS (10)
  1. DIOVAN [Suspect]
     Indication: HYPERTENSION
     Dosage: 1 DF (320 MG), DAILY
     Route: 048
  2. DIOVAN [Suspect]
     Dosage: 1 DF (160 MG), BID
  3. DIOVAN [Suspect]
     Dosage: 1 DF (320 MG), DAILY
     Route: 048
  4. ATENOLOL [Suspect]
     Dosage: UNK UKN, UNK
  5. ATENOLOL [Suspect]
     Dosage: UNK UKN, UNK
  6. HYDROCHLOROTHIAZIDE [Concomitant]
     Indication: HYPERTENSION
     Dosage: UNK UKN, UNK
  7. HYDROCHLOROTHIAZIDE [Concomitant]
     Indication: DIURETIC THERAPY
  8. ZANIDIP [Concomitant]
     Indication: CARDIAC DISORDER
     Dosage: 15 MG, A DAY
  9. SYNTHROID [Concomitant]
     Indication: THYROID DISORDER
     Dosage: UNK 80UG, UNK
  10. SYNTHROID [Concomitant]
     Dosage: UNK 8UG, UNK

REACTIONS (7)
  - Localised infection [Unknown]
  - Osteomyelitis [Unknown]
  - Dysstasia [Unknown]
  - Pain [Unknown]
  - Fall [Unknown]
  - Limb injury [Unknown]
  - Joint injury [Unknown]
